FAERS Safety Report 13426192 (Version 1)
Quarter: 2017Q2

REPORT INFORMATION
  Report Type: Spontaneous
  Country: US (occurrence: US)
  Receive Date: 20170411
  Receipt Date: 20170411
  Transmission Date: 20170830
  Serious: No
  Sender: FDA-Public Use
  Company Number: US-JNJFOC-20160804473

PATIENT
  Age: 62 Year
  Sex: Female
  Weight: 45.36 kg

DRUGS (6)
  1. AMBREX [Concomitant]
     Indication: INSOMNIA
     Route: 065
  2. FOSAMAX [Concomitant]
     Active Substance: ALENDRONATE SODIUM
     Indication: OSTEOPOROSIS
     Route: 065
  3. ALLUPOL [Concomitant]
     Active Substance: ALLOPURINOL
     Indication: GOUT
     Route: 065
  4. REMICADE [Suspect]
     Active Substance: INFLIXIMAB
     Indication: CROHN^S DISEASE
     Route: 042
     Dates: start: 20160725
  5. PROTONIX [Concomitant]
     Active Substance: PANTOPRAZOLE SODIUM
     Indication: GASTROOESOPHAGEAL REFLUX DISEASE
     Route: 065
  6. LISINOPRIL. [Concomitant]
     Active Substance: LISINOPRIL
     Indication: HYPERTENSION
     Route: 065

REACTIONS (8)
  - Drug intolerance [Unknown]
  - Pain in extremity [Unknown]
  - Arthralgia [Unknown]
  - Serum sickness [Unknown]
  - Myalgia [Not Recovered/Not Resolved]
  - Cold sweat [Unknown]
  - Paraesthesia [Recovered/Resolved]
  - Dry skin [Unknown]

NARRATIVE: CASE EVENT DATE: 201608
